FAERS Safety Report 20400447 (Version 3)
Quarter: 2022Q2

REPORT INFORMATION
  Report Type: Spontaneous
  Country: US (occurrence: US)
  Receive Date: 20220131
  Receipt Date: 20220419
  Transmission Date: 20220721
  Serious: Yes (Other)
  Sender: FDA-Public Use
  Company Number: US-NOVARTISTESTPH-NVSC2022US019195

PATIENT
  Sex: Female

DRUGS (4)
  1. TAFINLAR [Suspect]
     Active Substance: DABRAFENIB MESYLATE
     Indication: Illness
     Dosage: 150 MG, Q12H(3 WEEKS ON, THEN 1 WEEK OFF)
     Route: 048
  2. TAFINLAR [Suspect]
     Active Substance: DABRAFENIB MESYLATE
     Indication: Enthesopathy
  3. MEKINIST [Suspect]
     Active Substance: TRAMETINIB DIMETHYL SULFOXIDE
     Indication: Illness
     Dosage: 2 MG, QD(3 WEEKS ON, THEN 1 WEEK OFF)
     Route: 048
     Dates: start: 202110
  4. MEKINIST [Suspect]
     Active Substance: TRAMETINIB DIMETHYL SULFOXIDE
     Indication: Enthesopathy

REACTIONS (7)
  - Blindness [Unknown]
  - Cataract [Unknown]
  - Dry eye [Unknown]
  - Rash [Unknown]
  - Pyrexia [Unknown]
  - Headache [Unknown]
  - Product use in unapproved indication [Unknown]
